FAERS Safety Report 5863718-X (Version None)
Quarter: 2008Q3

REPORT INFORMATION
  Report Type: 
  Country: None (occurrence: None)
  Receive Date: 20080828
  Receipt Date: 20080819
  Transmission Date: 20090109
  Serious: Yes (Life-Threatening, Hospitalization)
  Sender: FDA-Public Use
  Company Number: GB-JNJCH-2008021512

PATIENT
  Age: 65 Year
  Sex: Male
  Weight: 84 kg

DRUGS (5)
  1. PHENYLEPHRINE [Suspect]
     Indication: NASOPHARYNGITIS
     Dosage: TEXT:UNSPECIFIED
     Route: 048
  2. CO-CODAMOL [Concomitant]
     Indication: OSTEOARTHRITIS
     Dosage: TEXT:1 DF
     Route: 048
  3. COVONIA [Concomitant]
     Dosage: TEXT:UNSPECIFIED
     Route: 048
  4. PHENYTOIN [Concomitant]
     Indication: EPILEPSY
     Dosage: TEXT:100 MG
     Route: 048
     Dates: start: 19780101
  5. TAMSULOSIN HCL [Concomitant]
     Indication: BLADDER DISORDER
     Dosage: TEXT:400 UG
     Route: 048
     Dates: start: 20060101

REACTIONS (2)
  - BLISTER [None]
  - DRUG ERUPTION [None]
